FAERS Safety Report 10208885 (Version 2)
Quarter: 2014Q2

REPORT INFORMATION
  Report Type: Spontaneous
  Country: JP (occurrence: JP)
  Receive Date: 20140530
  Receipt Date: 20140609
  Transmission Date: 20141212
  Serious: Yes (Hospitalization)
  Sender: FDA-Public Use
  Company Number: PHHY2014JP065756

PATIENT
  Age: 5 Year
  Sex: Female

DRUGS (3)
  1. CICLOSPORIN [Suspect]
     Indication: IMMUNOSUPPRESSANT DRUG THERAPY
  2. TACROLIMUS [Suspect]
     Indication: IMMUNOSUPPRESSANT DRUG THERAPY
  3. CORTICOSTEROIDS [Concomitant]

REACTIONS (6)
  - Osmotic demyelination syndrome [Recovered/Resolved]
  - Depressed level of consciousness [Recovered/Resolved]
  - Dysphagia [Unknown]
  - Cough [Unknown]
  - Hyperreflexia [Recovered/Resolved]
  - Drug ineffective [Unknown]
